FAERS Safety Report 7599103-2 (Version None)
Quarter: 2011Q3

REPORT INFORMATION
  Report Type: 
  Country: None (occurrence: None)
  Receive Date: 20110711
  Receipt Date: 20110706
  Transmission Date: 20111222
  Serious: Yes (Life-Threatening, Hospitalization)
  Sender: FDA-Public Use
  Company Number: US-BAYER-2011-058703

PATIENT
  Sex: Female

DRUGS (3)
  1. YASMIN [Suspect]
     Indication: CONTRACEPTION
     Dosage: UNK
     Dates: start: 20080101
  2. YAZ [Suspect]
     Indication: CONTRACEPTION
     Dosage: UNK
     Dates: start: 20080101
  3. DROSPIRENONE AND ETHINYL ESTRADIOL [Suspect]
     Indication: CONTRACEPTION
     Dosage: UNK
     Dates: start: 20080101

REACTIONS (14)
  - DYSPNOEA [None]
  - ANHEDONIA [None]
  - INJURY [None]
  - ANXIETY [None]
  - DEFORMITY [None]
  - MUSCLE STRAIN [None]
  - PULMONARY EMBOLISM [None]
  - CHEST PAIN [None]
  - FATIGUE [None]
  - PNEUMONIA [None]
  - DEEP VEIN THROMBOSIS [None]
  - VISUAL IMPAIRMENT [None]
  - FEAR [None]
  - PAIN [None]
